FAERS Safety Report 11209498 (Version 2)
Quarter: 2015Q3

REPORT INFORMATION
  Report Type: Spontaneous
  Country: GB (occurrence: GB)
  Receive Date: 20150622
  Receipt Date: 20150720
  Transmission Date: 20151125
  Serious: Yes (Hospitalization)
  Sender: FDA-Public Use
  Company Number: PHFR2015GB004677

PATIENT
  Sex: Male

DRUGS (1)
  1. GILENYA [Suspect]
     Active Substance: FINGOLIMOD HYDROCHLORIDE
     Indication: PRODUCT USED FOR UNKNOWN INDICATION
     Dosage: 0.5 MG, UNK
     Route: 048

REACTIONS (13)
  - Pain [Unknown]
  - Thermal burn [Unknown]
  - Dysgraphia [Unknown]
  - Muscle spasms [Unknown]
  - Hypokinesia [Unknown]
  - Arthralgia [Unknown]
  - Constipation [Unknown]
  - Limb discomfort [Unknown]
  - Dizziness [Unknown]
  - Bladder disorder [Unknown]
  - Multiple sclerosis relapse [Unknown]
  - Hypoaesthesia [Unknown]
  - Muscle tightness [Unknown]
